FAERS Safety Report 16760637 (Version 12)
Quarter: 2022Q1

REPORT INFORMATION
  Report Type: Spontaneous
  Country: US (occurrence: US)
  Receive Date: 20190830
  Receipt Date: 20220204
  Transmission Date: 20220423
  Serious: Yes (Hospitalization, Other)
  Sender: FDA-Public Use
  Company Number: US-PFIZER INC-2019369930

PATIENT
  Age: 76 Year
  Sex: Female
  Weight: 65.77 kg

DRUGS (15)
  1. CADUET [Suspect]
     Active Substance: AMLODIPINE BESYLATE\ATORVASTATIN CALCIUM
     Indication: Hypertension
     Dosage: UNK, 1X/DAY
  2. CADUET [Suspect]
     Active Substance: AMLODIPINE BESYLATE\ATORVASTATIN CALCIUM
     Indication: Blood cholesterol increased
     Dosage: UNK UNK, DAILY (5MG-10MG, TABLET, ONCE EVERY NIGHT AFTER SUPPER)
     Route: 048
  3. CADUET [Suspect]
     Active Substance: AMLODIPINE BESYLATE\ATORVASTATIN CALCIUM
     Dosage: UNK, 1X/DAY (5MG-10MG IN HER MOUTH WITH WATER EVERY NIGHT ONCE A DAY)
     Route: 048
  4. CELEBREX [Suspect]
     Active Substance: CELECOXIB
     Indication: Arthritis
     Dosage: 50 MG, 2X/DAY
     Dates: start: 2015
  5. SKELAXIN [Suspect]
     Active Substance: METAXALONE
     Indication: Arthritis
     Dosage: 800 MG, 2X/DAY
     Dates: start: 2016
  6. SKELAXIN [Suspect]
     Active Substance: METAXALONE
     Dosage: 800 MG, 2X/DAY
     Dates: start: 2016
  7. ACYCLOVIR [Concomitant]
     Active Substance: ACYCLOVIR
     Dosage: 800 MG, UNK
     Dates: start: 2000
  8. ALPRAZOLAM [Concomitant]
     Active Substance: ALPRAZOLAM
     Dosage: 0.5 MG, UNK
     Dates: start: 2000
  9. COREG CR [Concomitant]
     Active Substance: CARVEDILOL PHOSPHATE
     Dosage: 10 MG, UNK
     Dates: start: 2015
  10. ESTRACE [Concomitant]
     Active Substance: ESTRADIOL
     Dosage: UNK
     Route: 067
  11. HYDROCHLOROTHIAZIDE\IRBESARTAN [Concomitant]
     Active Substance: HYDROCHLOROTHIAZIDE\IRBESARTAN
     Dosage: UNK (HYDROCHLOROTHIAZIDE 300 MG/ IRBESARTAN 12.5 MG)
     Dates: start: 2015
  12. OS-CAL + D [Concomitant]
     Dosage: UNK
     Dates: start: 1995
  13. SYNTHROID [Concomitant]
     Active Substance: LEVOTHYROXINE SODIUM
     Dosage: 75 UG, UNK (0.075)
     Dates: start: 1998
  14. TRAMADOL [Concomitant]
     Active Substance: TRAMADOL
     Dosage: 50 MG, UNK
     Dates: start: 1998
  15. VITAMIN D3 [Concomitant]
     Active Substance: CHOLECALCIFEROL
     Dosage: 25 UG (1000 IU)

REACTIONS (3)
  - Rotator cuff syndrome [Recovering/Resolving]
  - Therapeutic product effect incomplete [Unknown]
  - Stress [Unknown]

NARRATIVE: CASE EVENT DATE: 20200101
